FAERS Safety Report 25548124 (Version 2)
Quarter: 2025Q3

REPORT INFORMATION
  Report Type: Spontaneous
  Country: US (occurrence: US)
  Receive Date: 20250714
  Receipt Date: 20250826
  Transmission Date: 20251020
  Serious: No
  Sender: ROCHE
  Company Number: US-ROCHE-10000331540

PATIENT
  Sex: Female

DRUGS (1)
  1. XOLAIR [Suspect]
     Active Substance: OMALIZUMAB
     Indication: Asthma
     Dosage: STRENGTH: 300 MG/2ML
     Route: 058
     Dates: start: 202405

REACTIONS (3)
  - Asthma [Unknown]
  - Illness [Unknown]
  - Pharyngitis streptococcal [Unknown]
